FAERS Safety Report 4605470-1 (Version None)
Quarter: 2005Q1

REPORT INFORMATION
  Report Type: 
  Country: None (occurrence: None)
  Receive Date: 20050310
  Receipt Date: 20040804
  Transmission Date: 20050727
  Serious: No
  Sender: FDA-Public Use
  Company Number: US-BRISTOL-MYERS SQUIBB COMPANY-12666376

PATIENT
  Age: 36 Year
  Sex: Female

DRUGS (3)
  1. MONISTAT [Suspect]
     Indication: VAGINAL MYCOSIS
     Route: 067
     Dates: start: 20040803, end: 20040803
  2. BACTRIM [Concomitant]
     Indication: URINARY TRACT INFECTION
  3. URISTAT [Concomitant]
     Indication: URINARY TRACT INFECTION

REACTIONS (1)
  - VAGINAL BURNING SENSATION [None]
